FAERS Safety Report 17279842 (Version 3)
Quarter: 2020Q1

REPORT INFORMATION
  Report Type: Report from Study
  Country: None (occurrence: US)
  Receive Date: 20200116
  Receipt Date: 20200311
  Transmission Date: 20200409
  Serious: Yes (Hospitalization, Other)
  Sender: FDA-Public Use
  Company Number: US-ABBVIE-20K-163-3236218-00

PATIENT
  Age: 57 Year
  Sex: Female
  Weight: 113.5 kg

DRUGS (1)
  1. HUMIRA [Suspect]
     Active Substance: ADALIMUMAB
     Indication: RHEUMATOID ARTHRITIS
     Route: 058
     Dates: start: 201908

REACTIONS (10)
  - Postmenopausal haemorrhage [Unknown]
  - Fibromyalgia [Unknown]
  - Musculoskeletal stiffness [Not Recovered/Not Resolved]
  - Uterine cancer [Unknown]
  - Cystitis interstitial [Unknown]
  - Joint stiffness [Unknown]
  - Back pain [Unknown]
  - Systemic lupus erythematosus [Unknown]
  - Loss of personal independence in daily activities [Not Recovered/Not Resolved]
  - Arthralgia [Unknown]

NARRATIVE: CASE EVENT DATE: 20191105
